FAERS Safety Report 7233512-6 (Version None)
Quarter: 2011Q1

REPORT INFORMATION
  Report Type: 
  Country: None (occurrence: None)
  Receive Date: 20110110
  Receipt Date: 20101227
  Transmission Date: 20110831
  Serious: Yes (Disabling, Other)
  Sender: FDA-Public Use
  Company Number: ACO_21205_2010

PATIENT
  Age: 69 Year
  Sex: Female
  Weight: 79.4 kg

DRUGS (3)
  1. AMPYRA [Suspect]
     Indication: GAIT DISTURBANCE
     Dosage: 10 MG, BID, ORAL
     Route: 048
     Dates: start: 20101206, end: 20101209
  2. AMPYRA [Suspect]
     Indication: MULTIPLE SCLEROSIS
     Dosage: 10 MG, BID, ORAL
     Route: 048
     Dates: start: 20101206, end: 20101209
  3. LIPITOR (ATORVASTATNI CALCIUM) [Concomitant]

REACTIONS (2)
  - TREMOR [None]
  - ABASIA [None]
